FAERS Safety Report 6382464-X (Version None)
Quarter: 2009Q3

REPORT INFORMATION
  Report Type: 
  Country: None (occurrence: None)
  Receive Date: 20090928
  Receipt Date: 20090928
  Transmission Date: 20100115
  Serious: Yes (Other)
  Sender: FDA-Public Use
  Company Number: None

PATIENT
  Age: 45 Year
  Sex: Male

DRUGS (1)
  1. APIDRA [Suspect]
     Indication: TYPE 1 DIABETES MELLITUS
     Dosage: USE 100 UNTS CONTINUOUSLY

REACTIONS (3)
  - BLOOD GLUCOSE INCREASED [None]
  - LIQUID PRODUCT PHYSICAL ISSUE [None]
  - MEDICAL DEVICE COMPLICATION [None]
